FAERS Safety Report 9205918 (Version 2)
Quarter: 2013Q4

REPORT INFORMATION
  Report Type: Spontaneous
  Country: US (occurrence: US)
  Receive Date: 20130403
  Receipt Date: 20131105
  Transmission Date: 20140711
  Serious: Yes (Other)
  Sender: FDA-Public Use
  Company Number: US-BAYER-2013-039567

PATIENT
  Age: 21 Year
  Sex: Female

DRUGS (4)
  1. YAZ [Suspect]
  2. YASMIN [Suspect]
  3. ZOFRAN [Concomitant]
     Dosage: UNK UNK, PRN
     Route: 048
  4. ZANTAC [Concomitant]
     Route: 048

REACTIONS (6)
  - Gallbladder injury [None]
  - Cholecystitis chronic [None]
  - Biliary tract disorder [None]
  - Injury [None]
  - Pain [None]
  - Pain [None]
